FAERS Safety Report 6287846-2 (Version None)
Quarter: 2009Q3

REPORT INFORMATION
  Report Type: 
  Country: None (occurrence: None)
  Receive Date: 20090729
  Receipt Date: 20071003
  Transmission Date: 20100115
  Serious: Yes (Hospitalization, Other)
  Sender: FDA-Public Use
  Company Number: US-ASTRAZENECA-2007UW18860

PATIENT
  Age: 18244 Day
  Sex: Female
  Weight: 125.2 kg

DRUGS (21)
  1. SEROQUEL [Suspect]
     Indication: BIPOLAR DISORDER
     Dosage: 100-400 MG
     Route: 048
     Dates: start: 20010312
  2. SEROQUEL [Suspect]
     Indication: SLEEP DISORDER
     Dosage: 100-400 MG
     Route: 048
     Dates: start: 20010312
  3. SEROQUEL [Suspect]
     Route: 048
     Dates: start: 20010301, end: 20050901
  4. SEROQUEL [Suspect]
     Route: 048
     Dates: start: 20010301, end: 20050901
  5. CLOZARIL [Concomitant]
     Dates: start: 20010101
  6. GEODON [Concomitant]
     Dates: start: 20050101
  7. WELLBUTRIN [Concomitant]
  8. PREVACID [Concomitant]
  9. ZESTRIL [Concomitant]
  10. ACTOS [Concomitant]
  11. GLUCOPHAGE [Concomitant]
  12. ELAVIL [Concomitant]
  13. LORTAB [Concomitant]
  14. ATIVAN [Concomitant]
  15. KLONOPIN [Concomitant]
  16. ZYPREXA [Concomitant]
  17. PROZAC [Concomitant]
  18. GLYBURIDE [Concomitant]
  19. ALLOPURINOL [Concomitant]
  20. ANTIVERT [Concomitant]
  21. INSULIN HUMAN [Concomitant]

REACTIONS (17)
  - ANKLE FRACTURE [None]
  - CARPAL TUNNEL DECOMPRESSION [None]
  - CHOLECYSTECTOMY [None]
  - CHOLECYSTITIS CHRONIC [None]
  - COLON OPERATION [None]
  - DIABETES MELLITUS [None]
  - DIABETIC NEPHROPATHY [None]
  - DIABETIC NEUROPATHY [None]
  - DIVERTICULITIS [None]
  - FALL [None]
  - HERNIA [None]
  - HYPERGLYCAEMIA [None]
  - INCISIONAL HERNIA [None]
  - INFECTION [None]
  - LOWER LIMB FRACTURE [None]
  - NAUSEA [None]
  - POST PROCEDURAL INFECTION [None]
